FAERS Safety Report 14794733 (Version 5)
Quarter: 2020Q4

REPORT INFORMATION
  Report Type: Spontaneous
  Country: US (occurrence: US)
  Receive Date: 20180423
  Receipt Date: 20201028
  Transmission Date: 20210113
  Serious: Yes (Hospitalization, Other)
  Sender: FDA-Public Use
  Company Number: US-009507513-1710USA001034

PATIENT
  Sex: Female
  Weight: 105.22 kg

DRUGS (8)
  1. ZOSTAVAX [Suspect]
     Active Substance: VARICELLA-ZOSTER VIRUS STRAIN OKA/MERCK LIVE ANTIGEN
     Indication: PROPHYLAXIS
  2. CLOTRIMAZOLE. [Suspect]
     Active Substance: CLOTRIMAZOLE
  3. ZOSTAVAX [Suspect]
     Active Substance: VARICELLA-ZOSTER VIRUS STRAIN OKA/MERCK LIVE ANTIGEN
     Indication: ROUTINE HEALTH MAINTENANCE
     Dosage: .65 MILLILITER
     Route: 058
     Dates: start: 20151019, end: 20151019
  4. STERILE DILUENT (WATER) [Suspect]
     Active Substance: WATER
     Indication: PROPHYLAXIS
  5. STERILE DILUENT (WATER) [Suspect]
     Active Substance: WATER
     Indication: ROUTINE HEALTH MAINTENANCE
     Dosage: 0.7 ML, ONCE
     Route: 058
     Dates: start: 20151019, end: 20151019
  6. TEGRETOL [Suspect]
     Active Substance: CARBAMAZEPINE
     Indication: PAIN
     Dosage: UNK
     Route: 065
     Dates: start: 201512
  7. KLONOPIN [Concomitant]
     Active Substance: CLONAZEPAM
     Indication: RESTLESS LEGS SYNDROME
     Dosage: UNK
  8. GABAPENTIN. [Suspect]
     Active Substance: GABAPENTIN
     Dosage: UNK
     Route: 065
     Dates: start: 201512

REACTIONS (44)
  - Transient ischaemic attack [Unknown]
  - Pruritus [Unknown]
  - Dizziness [Unknown]
  - Nightmare [Unknown]
  - Depression [Unknown]
  - Chills [Unknown]
  - Herpes zoster [Not Recovered/Not Resolved]
  - Rash [Unknown]
  - Deafness [Not Recovered/Not Resolved]
  - Major depression [Not Recovered/Not Resolved]
  - Gait disturbance [Not Recovered/Not Resolved]
  - Eye pain [Unknown]
  - Toothache [Unknown]
  - Eye pain [Unknown]
  - Arthralgia [Unknown]
  - Drug hypersensitivity [Unknown]
  - Gastrointestinal disorder [Unknown]
  - Meniscus operation [Unknown]
  - Vaccination failure [Not Recovered/Not Resolved]
  - Cough [Unknown]
  - Facial pain [Unknown]
  - Flushing [Unknown]
  - Trigeminal neuralgia [Not Recovered/Not Resolved]
  - Dysphoria [Unknown]
  - Lip pain [Unknown]
  - Feeling abnormal [Unknown]
  - Dry eye [Unknown]
  - Asthenia [Unknown]
  - Post-traumatic stress disorder [Not Recovered/Not Resolved]
  - Suicidal ideation [Unknown]
  - Cerebral atrophy [Unknown]
  - Eye disorder [Not Recovered/Not Resolved]
  - Insomnia [Unknown]
  - Nausea [Unknown]
  - Periodic limb movement disorder [Unknown]
  - Vomiting [Unknown]
  - Dyspnoea [Unknown]
  - Oropharyngeal pain [Unknown]
  - Myalgia [Unknown]
  - Headache [Unknown]
  - Bipolar disorder [Unknown]
  - Hyperhidrosis [Unknown]
  - Anxiety [Unknown]
  - Nausea [Unknown]

NARRATIVE: CASE EVENT DATE: 201511
